FAERS Safety Report 9146958 (Version 1)
Quarter: 2013Q1

REPORT INFORMATION
  Report Type: Spontaneous
  Country: JP (occurrence: None)
  Receive Date: 20130222
  Receipt Date: 20130222
  Transmission Date: 20140127
  Serious: Yes (Death)
  Sender: FDA-Public Use
  Company Number: SYM-2013-00724

PATIENT
  Age: 58 Year
  Sex: Male

DRUGS (1)
  1. HERBESSER [Suspect]
     Indication: PRODUCT USED FOR UNKNOWN INDICATION
     Route: 048
     Dates: start: 201110, end: 201111

REACTIONS (1)
  - Toxic epidermal necrolysis [None]
